FAERS Safety Report 15888260 (Version 1)
Quarter: 2019Q1

REPORT INFORMATION
  Report Type: Report from Study
  Country: US (occurrence: US)
  Receive Date: 20190130
  Receipt Date: 20190130
  Transmission Date: 20190417
  Serious: Yes (Other)
  Sender: FDA-Public Use
  Company Number: US-EMD SERONO-9066665

PATIENT
  Sex: Male

DRUGS (1)
  1. SEROSTIM [Suspect]
     Active Substance: SOMATROPIN
     Indication: PRODUCT USED FOR UNKNOWN INDICATION
     Dosage: 7-VIAL PACK
     Route: 058
     Dates: start: 20140604

REACTIONS (5)
  - Joint swelling [Unknown]
  - Treatment noncompliance [Unknown]
  - Spinal disorder [Unknown]
  - Procedural failure [Unknown]
  - Peripheral swelling [Unknown]
